FAERS Safety Report 7810294-8 (Version None)
Quarter: 2011Q4

REPORT INFORMATION
  Report Type: 
  Country: None (occurrence: None)
  Receive Date: 20111012
  Receipt Date: 20111007
  Transmission Date: 20120403
  Serious: Yes (Death, Hospitalization)
  Sender: FDA-Public Use
  Company Number: MX-SANOFI-AVENTIS-2011SA066045

PATIENT
  Age: 58 Year
  Sex: Male

DRUGS (4)
  1. PLAVIX [Suspect]
     Indication: THROMBOSIS PROPHYLAXIS
     Route: 048
     Dates: start: 20090101, end: 20110910
  2. ADALAT [Concomitant]
     Route: 048
     Dates: start: 20090101, end: 20110910
  3. PLAVIX [Suspect]
     Indication: STENT PLACEMENT
     Route: 048
     Dates: start: 20090101, end: 20110910
  4. PLAVIX [Suspect]
     Indication: CARDIAC OPERATION
     Route: 048
     Dates: start: 20090101, end: 20110910

REACTIONS (1)
  - RESPIRATORY ARREST [None]
